FAERS Safety Report 6014112-2 (Version None)
Quarter: 2008Q4

REPORT INFORMATION
  Report Type: 
  Country: None (occurrence: None)
  Receive Date: 20081219
  Receipt Date: 20071213
  Transmission Date: 20090506
  Serious: No
  Sender: FDA-Public Use
  Company Number: A0698817A

PATIENT
  Age: 66 Year
  Sex: Male

DRUGS (7)
  1. AVODART [Suspect]
     Indication: BENIGN PROSTATIC HYPERPLASIA
     Dosage: .5MG PER DAY
     Route: 048
     Dates: start: 20071101, end: 20071108
  2. GLUCOPHAGE [Concomitant]
  3. DIABETA [Concomitant]
  4. LANTUS [Concomitant]
  5. TIAZAC [Concomitant]
  6. ZYLOPRIM [Concomitant]
  7. ACTOS [Concomitant]

REACTIONS (3)
  - FEELING ABNORMAL [None]
  - MUSCULOSKELETAL STIFFNESS [None]
  - NECK PAIN [None]
